FAERS Safety Report 5600299-X (Version None)
Quarter: 2007Q4

REPORT INFORMATION
  Report Type: 
  Country: None (occurrence: None)
  Receive Date: 20071226
  Receipt Date: 20070302
  Transmission Date: 20080405
  Serious: Yes (Hospitalization, Disabling)
  Sender: FDA-Public Use
  Company Number: 233321

PATIENT
  Age: 42 Year
  Sex: Male
  Weight: 88.9 kg

DRUGS (3)
  1. RAPTIVA [Suspect]
     Indication: PSORIASIS
     Dosage: 0.9 ML, 1/WEEK, SUBCUTANEOUS
     Route: 058
     Dates: start: 20040301, end: 20061101
  2. DOVONEX OINTMENT (CALCIPOTRIENE) [Concomitant]
  3. TACLONEX OINTMENT (BETAMETHASONE DIPROPIONATE, CALCIPOTRIENE) [Concomitant]

REACTIONS (2)
  - ARTHRITIS [None]
  - MYALGIA [None]
